FAERS Safety Report 23832292 (Version 1)
Quarter: 2024Q2

REPORT INFORMATION
  Report Type: Spontaneous
  Country: CN (occurrence: CN)
  Receive Date: 20240508
  Receipt Date: 20240508
  Transmission Date: 20240716
  Serious: Yes (Life-Threatening)
  Sender: FDA-Public Use
  Company Number: CN-ABBVIE-5748562

PATIENT
  Age: 12 Year
  Sex: Female

DRUGS (4)
  1. VENETOCLAX [Suspect]
     Active Substance: VENETOCLAX
     Indication: Neoplasm prophylaxis
     Dosage: 100 MILLIGRAM
     Route: 048
     Dates: start: 20240402, end: 20240415
  2. CYTARABINE [Suspect]
     Active Substance: CYTARABINE
     Indication: Neoplasm prophylaxis
     Dosage: 200 MILLIGRAM?FOR INJECTION
     Route: 041
     Dates: start: 20240403, end: 20240409
  3. IDARUBICIN HYDROCHLORIDE [Suspect]
     Active Substance: IDARUBICIN HYDROCHLORIDE
     Indication: Neoplasm prophylaxis
     Dosage: 10 MILLIGRAM?FOR INJECTION
     Route: 041
     Dates: start: 20240403, end: 20240405
  4. AZACITIDINE [Suspect]
     Active Substance: AZACITIDINE
     Indication: Neoplasm prophylaxis
     Dosage: 100 MILLIGRAM?FOR INJECTION
     Route: 041
     Dates: start: 20240403, end: 20240409

REACTIONS (2)
  - Myelosuppression [Unknown]
  - Granulocytes abnormal [Not Recovered/Not Resolved]

NARRATIVE: CASE EVENT DATE: 20240401
